FAERS Safety Report 4563563-1 (Version None)
Quarter: 2005Q1

REPORT INFORMATION
  Report Type: 
  Country: None (occurrence: None)
  Receive Date: 20050128
  Receipt Date: 20040930
  Transmission Date: 20050727
  Serious: No
  Sender: FDA-Public Use
  Company Number: US-GLAXOSMITHKLINE-A0527971A

PATIENT
  Age: 65 Year
  Sex: Female

DRUGS (5)
  1. WELLBUTRIN [Suspect]
     Indication: ILL-DEFINED DISORDER
     Route: 048
  2. TOPROL-XL [Concomitant]
  3. CELEBREX [Concomitant]
  4. ZOCOR [Concomitant]
  5. DIURETIC [Concomitant]

REACTIONS (1)
  - HYPERHIDROSIS [None]
